FAERS Safety Report 4675646-6 (Version None)
Quarter: 2005Q2

REPORT INFORMATION
  Report Type: 
  Country: None (occurrence: None)
  Receive Date: 20050527
  Receipt Date: 20050517
  Transmission Date: 20051028
  Serious: Yes (Disabling, Other)
  Sender: FDA-Public Use
  Company Number: CH-BRISTOL-MYERS SQUIBB COMPANY-12981296

PATIENT
  Age: 34 Year
  Sex: Male

DRUGS (8)
  1. STOCRIN [Suspect]
     Dates: start: 19990301, end: 20000101
  2. STAVUDINE [Suspect]
     Dates: start: 19970301, end: 20021201
  3. INDINAVIR [Suspect]
     Indication: HIV INFECTION
     Route: 048
     Dates: start: 19970301, end: 19990301
  4. LAMIVUDINE [Suspect]
     Dates: start: 19950901, end: 20021201
  5. NEVIRAPINE [Suspect]
     Dosage: INTERRUPTED IN DEC-2002 RESTARTED JUL-2003
     Dates: start: 20000101
  6. DIGOXIN [Concomitant]
     Dates: start: 19940101
  7. LISINOPRIL AND HYDROCHLOROTHIAZIDE [Concomitant]
     Dates: start: 19990301
  8. PHENPROCOUMON [Concomitant]
     Dates: start: 19940101

REACTIONS (2)
  - LIPODYSTROPHY ACQUIRED [None]
  - PULMONARY ARTERIAL PRESSURE INCREASED [None]
